FAERS Safety Report 23159806 (Version 6)
Quarter: 2025Q2

REPORT INFORMATION
  Report Type: Spontaneous
  Country: FR (occurrence: None)
  Receive Date: 20231108
  Receipt Date: 20250512
  Transmission Date: 20250716
  Serious: Yes (Hospitalization, Other)
  Sender: INCYTE
  Company Number: FR-002147023-NVSC2023FR236176

PATIENT

DRUGS (5)
  1. RUXOLITINIB [Suspect]
     Active Substance: RUXOLITINIB
     Indication: Polycythaemia vera
     Dosage: 5 MG, BID
     Route: 065
  2. RUXOLITINIB [Suspect]
     Active Substance: RUXOLITINIB
     Dosage: 10 MG, BID
     Route: 065
  3. RUXOLITINIB [Suspect]
     Active Substance: RUXOLITINIB
     Dosage: 15 MG, BID
     Route: 065
  4. RUXOLITINIB [Suspect]
     Active Substance: RUXOLITINIB
     Route: 065
  5. KEPPRA [Concomitant]
     Active Substance: LEVETIRACETAM
     Indication: Product used for unknown indication
     Route: 065

REACTIONS (42)
  - Amnesia [Unknown]
  - Apathy [Unknown]
  - Aphasia [Recovering/Resolving]
  - Bronchitis [Unknown]
  - Encephalitis herpes [Not Recovered/Not Resolved]
  - Arthralgia [Unknown]
  - Dizziness [Unknown]
  - Somnolence [Unknown]
  - Malaise [Unknown]
  - Orchitis [Unknown]
  - Deafness unilateral [Unknown]
  - Condition aggravated [Unknown]
  - Anal incontinence [Unknown]
  - Cough [Unknown]
  - Herpes virus infection [Unknown]
  - Fatigue [Unknown]
  - Affect lability [Unknown]
  - Irritability [Unknown]
  - Headache [Unknown]
  - Viral load increased [Unknown]
  - Meningitis herpes [Unknown]
  - Petit mal epilepsy [Unknown]
  - Myalgia [Unknown]
  - Myoclonic epilepsy [Unknown]
  - Asthma [Unknown]
  - Nosocomephobia [Unknown]
  - Lung disorder [Unknown]
  - Head injury [Unknown]
  - Deafness unilateral [Unknown]
  - Cognitive disorder [Unknown]
  - Positron emission tomogram abnormal [Unknown]
  - Memory impairment [Unknown]
  - Sleep disorder [Unknown]
  - Disorientation [Unknown]
  - Generalised tonic-clonic seizure [Unknown]
  - Pyrexia [Not Recovered/Not Resolved]
  - Carpal tunnel syndrome [Unknown]
  - Prosopagnosia [Unknown]
  - Folate deficiency [Unknown]
  - Disturbance in attention [Unknown]
  - Sleep apnoea syndrome [Unknown]
  - Gait disturbance [Unknown]
